FAERS Safety Report 9131708 (Version 1)
Quarter: 2013Q1

REPORT INFORMATION
  Report Type: Report from Study
  Country: US (occurrence: US)
  Receive Date: 20130301
  Receipt Date: 20130301
  Transmission Date: 20140127
  Serious: No
  Sender: FDA-Public Use
  Company Number: US-MYLANLABS-2012S1011789

PATIENT
  Age: 16 Year
  Sex: Female

DRUGS (6)
  1. AMNESTEEM CAPSULES [Suspect]
     Indication: ACNE
     Route: 048
     Dates: start: 20120214, end: 201203
  2. AMNESTEEM CAPSULES [Suspect]
     Indication: ACNE
     Route: 048
     Dates: start: 201203, end: 201204
  3. AMNESTEEM CAPSULES [Suspect]
     Indication: ACNE
     Route: 048
     Dates: start: 201203, end: 201204
  4. AMNESTEEM CAPSULES [Suspect]
     Indication: ACNE
     Route: 048
     Dates: start: 201204, end: 20120605
  5. GIANVI [Suspect]
     Indication: ORAL CONTRACEPTION
     Dates: start: 201205
  6. YAZ [Concomitant]
     Route: 048

REACTIONS (4)
  - Hepatic enzyme increased [Unknown]
  - Urticaria [Unknown]
  - Rash [Unknown]
  - Feeling jittery [Unknown]
